FAERS Safety Report 7328306-7 (Version None)
Quarter: 2011Q1

REPORT INFORMATION
  Report Type: 
  Country: None (occurrence: None)
  Receive Date: 20110223
  Receipt Date: 20110214
  Transmission Date: 20110831
  Serious: Yes (Hospitalization)
  Sender: FDA-Public Use
  Company Number: 2011S1000005

PATIENT
  Age: 77 Year
  Sex: Female
  Weight: 48 kg

DRUGS (11)
  1. ESTAZOLAM [Concomitant]
  2. OLMETEC [Concomitant]
  3. DEPAS (ETIZOLAM) [Suspect]
     Dosage: PO
     Route: 048
  4. DEPAKENE [Concomitant]
  5. SERTRALINE [Concomitant]
  6. VALERIN /00228502/ (VALPROATE SODIUM) [Suspect]
     Dosage: PO
     Route: 048
  7. ABILIFY [Suspect]
     Dosage: PO
     Route: 048
  8. LIVALO [Suspect]
     Indication: HYPERCHOLESTEROLAEMIA
     Dosage: 2 MG;1X;PO
     Route: 048
     Dates: start: 20090728, end: 20101213
  9. FLUNITRAZEPAM (FLUNITRAZEPAM) [Suspect]
     Dosage: PO
     Route: 048
  10. CLOTIAZEPAM [Concomitant]
  11. METFORMIN HCL [Concomitant]

REACTIONS (1)
  - RHABDOMYOLYSIS [None]
